FAERS Safety Report 8958333 (Version 1)
Quarter: 2012Q4

REPORT INFORMATION
  Report Type: 
  Country: KR (occurrence: KR)
  Receive Date: 20121210
  Receipt Date: 20121210
  Transmission Date: 20130627
  Serious: Yes (Hospitalization)
  Sender: FDA-Public Use
  Company Number: KR-ELI_LILLY_AND_COMPANY-KR201211009076

PATIENT
  Age: 58 Year
  Sex: Female
  Weight: 51 kg

DRUGS (5)
  1. BYETTA [Suspect]
     Indication: TYPE 2 DIABETES MELLITUS
     Dosage: 5 ug, bid
     Dates: start: 20121103, end: 20121126
  2. BYETTA [Suspect]
     Dosage: 10 ug, bid
     Dates: start: 20121127
  3. ANTIHYPERTENSIVES [Concomitant]
     Indication: HYPERTENSION
  4. LIPID MODIFYING AGENTS [Concomitant]
     Indication: HYPERLIPIDAEMIA
  5. DRUG USED IN DIABETES [Concomitant]
     Indication: TYPE 2 DIABETES MELLITUS

REACTIONS (2)
  - Musculoskeletal pain [Not Recovered/Not Resolved]
  - Poor quality sleep [Not Recovered/Not Resolved]
